FAERS Safety Report 4297506-5 (Version None)
Quarter: 2004Q1

REPORT INFORMATION
  Report Type: 
  Country: None (occurrence: None)
  Receive Date: 20040217
  Receipt Date: 20040217
  Transmission Date: 20041129
  Serious: Yes (Hospitalization)
  Sender: FDA-Public Use
  Company Number: None

PATIENT
  Sex: Male
  Weight: 79.3795 kg

DRUGS (4)
  1. ZITHROMAX [Suspect]
     Indication: INFECTION
     Dosage: PO [STARTED 2 DAYS PRIOR TO THE ER VISIT]
     Route: 048
  2. PAXIL [Concomitant]
  3. ROBITUSSIN DM [Concomitant]
  4. TYLENOL (CAPLET) [Concomitant]

REACTIONS (8)
  - BURNING SENSATION [None]
  - CHEST PAIN [None]
  - COUGH [None]
  - DYSPNOEA [None]
  - PAIN [None]
  - PYREXIA [None]
  - RASH GENERALISED [None]
  - RASH PRURITIC [None]
